FAERS Safety Report 9187828 (Version 1)
Quarter: 2013Q1

REPORT INFORMATION
  Report Type: Spontaneous
  Country: US (occurrence: US)
  Receive Date: 20130325
  Receipt Date: 20130325
  Transmission Date: 20140127
  Serious: No
  Sender: FDA-Public Use
  Company Number: US-BAUSCH-BL-2012-002240

PATIENT
  Age: 55 Year
  Sex: Female

DRUGS (11)
  1. FLUNISOLIDE [Suspect]
     Indication: SINUS DISORDER
     Dosage: 1 SPRAY IN EACH NOSTRIL; ONCE; NASAL
     Route: 045
     Dates: start: 20121204, end: 20121204
  2. FLUNISOLIDE [Suspect]
     Indication: HYPERSENSITIVITY
  3. BACLOFEN [Concomitant]
     Indication: BACK PAIN
  4. GABAPENTIN [Concomitant]
  5. FLUOXETINE [Concomitant]
  6. CLONAZEPAM [Concomitant]
  7. NO DRUG NAME [Concomitant]
  8. ERGOCALCIFEROL [Concomitant]
  9. TERIFLUNOMIDE [Concomitant]
     Indication: MULTIPLE SCLEROSIS
     Dosage: 1 TABLET; ONCE DAILY; ORAL
     Route: 048
     Dates: start: 20121109
  10. CEFPROZIL [Concomitant]
     Indication: SINUS DISORDER
  11. PARACETAMOL/HYDROCODONE BITARTRATE [Concomitant]
     Indication: BACK PAIN
     Dosage: 5/325 MG; EVERY 4 HOURS; ORAL
     Route: 048

REACTIONS (3)
  - Headache [Not Recovered/Not Resolved]
  - Eye pain [Recovered/Resolved]
  - Nasal discomfort [Recovered/Resolved]
